FAERS Safety Report 9293155 (Version 1)
Quarter: 2013Q2

REPORT INFORMATION
  Report Type: Spontaneous
  Country: US (occurrence: None)
  Receive Date: 20130514
  Receipt Date: 20130514
  Transmission Date: 20140414
  Serious: Yes (Other)
  Sender: FDA-Public Use
  Company Number: 2013AP005065

PATIENT
  Age: 42 Year
  Sex: Female

DRUGS (2)
  1. DICLOFENAC [Concomitant]
  2. FROVATRIPTAN (FROVATRIPTAN) [Concomitant]

REACTIONS (1)
  - Periorbital oedema [None]
